FAERS Safety Report 8600213-9 (Version None)
Quarter: 2012Q3

REPORT INFORMATION
  Report Type: 
  Country: None (occurrence: None)
  Receive Date: 20120817
  Receipt Date: 20120806
  Transmission Date: 20120928
  Serious: No
  Sender: FDA-Public Use
  Company Number: US-BIOGENIDEC-2012BI029921

PATIENT
  Sex: Female

DRUGS (3)
  1. MS CONTIN ER [Concomitant]
     Indication: PAIN IN EXTREMITY
     Route: 048
  2. MS CONTIN IR [Concomitant]
     Indication: PAIN IN EXTREMITY
     Route: 048
  3. TYSABRI [Suspect]
     Indication: MULTIPLE SCLEROSIS
     Route: 042
     Dates: start: 20070924

REACTIONS (15)
  - BALANCE DISORDER [None]
  - BINGE DRINKING [None]
  - NASOPHARYNGITIS [None]
  - OVERDOSE [None]
  - OEDEMA PERIPHERAL [None]
  - VITAMIN D DECREASED [None]
  - PAIN [None]
  - LIMB INJURY [None]
  - OXYGEN SATURATION DECREASED [None]
  - MUSCLE SPASMS [None]
  - PAIN IN EXTREMITY [None]
  - FATIGUE [None]
  - DRUG WITHDRAWAL SYNDROME [None]
  - CONTUSION [None]
  - HEADACHE [None]
